FAERS Safety Report 5171341-8 (Version None)
Quarter: 2006Q4

REPORT INFORMATION
  Report Type: 
  Country: None (occurrence: None)
  Receive Date: 20061213
  Receipt Date: 20060301
  Transmission Date: 20070319
  Serious: Yes (Other)
  Sender: FDA-Public Use
  Company Number: US-AMGEN-STX170844

PATIENT
  Sex: Female

DRUGS (3)
  1. ENBREL [Suspect]
     Indication: RHEUMATOID ARTHRITIS
     Dates: start: 20010202
  2. HYDROXYCHLOROQUINE SULFATE [Concomitant]
  3. ARAVA [Concomitant]

REACTIONS (4)
  - ABNORMAL SENSATION IN EYE [None]
  - BREAST CANCER [None]
  - DEAFNESS UNILATERAL [None]
  - TINNITUS [None]
